FAERS Safety Report 5620126-4 (Version None)
Quarter: 2008Q1

REPORT INFORMATION
  Report Type: 
  Country: None (occurrence: None)
  Receive Date: 20080208
  Receipt Date: 20080125
  Transmission Date: 20080703
  Serious: Yes (Hospitalization)
  Sender: FDA-Public Use
  Company Number: GB-ROCHE-535664

PATIENT
  Age: 55 Year
  Sex: Female
  Weight: 110 kg

DRUGS (13)
  1. ORLISTAT [Suspect]
     Indication: OBESITY
     Route: 048
     Dates: start: 20071029
  2. MIRTAZAPINE [Concomitant]
     Indication: DEPRESSION
     Dosage: AMOUNT: 28 TABLETS
     Route: 048
  3. ASPIRIN [Concomitant]
     Indication: ANGINA PECTORIS
     Dosage: DRUG NAME: ASPIRIN DISPERSIBLE, AMOUNT: 56
     Route: 048
  4. ENAPRIL [Concomitant]
     Dosage: INDICATION REPORTED: CARDIAC, AMOUNT: 56
     Route: 048
  5. ISOSORBIDE DINITRATE [Concomitant]
     Dosage: INDICATION REPORTED: CARDIAC, AMOUNT: 84
     Route: 048
  6. ATORVASTATIN CALCIUM [Concomitant]
     Dosage: AMOUNT: 56
     Route: 048
  7. ATENOLOL [Concomitant]
     Dosage: INDICATION REPORTED: CARDIAC, DOSAGE: TAKEN ONE EACH MORNING, AMOUNT: 56
     Route: 048
  8. FUROSEMIDE [Concomitant]
     Dosage: AMOUNT: 56
  9. FELODIPINE [Concomitant]
     Dosage: DOSAGE: ONE TAKEN EACH MORNING
  10. GLYCERYL TRINITRATE [Concomitant]
     Dosage: AMOUNT: 100 TABLETS
  11. NICORANDIL [Concomitant]
     Dosage: AMOUNT: 120 TABLETS
  12. ESOMEPRAZOLE MAGNESIUM [Concomitant]
     Dosage: AMOUNT: 56 TABLETS
  13. CLOTRIMAZOLE [Concomitant]
     Dosage: AMOUNT: 60 GRAM, DOSAGE; APLLY THINLY TWICE DAILY

REACTIONS (1)
  - CHEST PAIN [None]
